FAERS Safety Report 17421498 (Version 2)
Quarter: 2020Q2

REPORT INFORMATION
  Report Type: Spontaneous
  Country: GB (occurrence: GB)
  Receive Date: 20200214
  Receipt Date: 20200521
  Transmission Date: 20200713
  Serious: Yes (Hospitalization)
  Sender: FDA-Public Use
  Company Number: GB-VERTEX PHARMACEUTICALS-2020-001417

PATIENT
  Age: 63 Year
  Sex: Male
  Weight: 88 kg

DRUGS (5)
  1. SYMKEVI [Suspect]
     Active Substance: IVACAFTOR\TEZACAFTOR
     Indication: CYSTIC FIBROSIS
     Dosage: 100MG TEZACAFTOR/ 150MG IVACAFTOR, QD IN EVENING
     Route: 048
     Dates: start: 2019, end: 20200120
  2. SYMKEVI [Suspect]
     Active Substance: IVACAFTOR\TEZACAFTOR
     Dosage: 100MG TEZACAFTOR/ 150MG IVACAFTOR, IN THE MORNING EVERY OTHER DAY
     Route: 048
     Dates: start: 2020
  3. KALYDECO [Suspect]
     Active Substance: IVACAFTOR
     Dosage: 150 MG IVACAFTOR, IN THE EVENING EVERY OTHER DAY
     Route: 048
     Dates: start: 2020
  4. AZITHROMYCIN ANHYDROUS. [Concomitant]
     Active Substance: AZITHROMYCIN ANHYDROUS
  5. KALYDECO [Suspect]
     Active Substance: IVACAFTOR
     Indication: CYSTIC FIBROSIS
     Dosage: 150 MG IVACAFTOR, QD IN EVENING
     Route: 048
     Dates: start: 2019, end: 20200120

REACTIONS (3)
  - Rash [Unknown]
  - Erythema [Unknown]
  - Dermatitis allergic [Recovering/Resolving]

NARRATIVE: CASE EVENT DATE: 20200111
